FAERS Safety Report 15752512 (Version 1)
Quarter: 2018Q4

REPORT INFORMATION
  Report Type: Report from Study
  Country: None (occurrence: CN)
  Receive Date: 20181221
  Receipt Date: 20181221
  Transmission Date: 20190205
  Serious: Yes (Other)
  Sender: FDA-Public Use
  Company Number: CN-BAUSCH-BL-2018-035642

PATIENT
  Age: 53 Year
  Sex: Male

DRUGS (2)
  1. VERTEPORFIN [Suspect]
     Active Substance: VERTEPORFIN
     Indication: PRODUCT USE IN UNAPPROVED INDICATION
  2. VERTEPORFIN [Suspect]
     Active Substance: VERTEPORFIN
     Indication: CHOROIDAL HAEMANGIOMA
     Route: 042

REACTIONS (2)
  - Retinal artery occlusion [Unknown]
  - Product use in unapproved indication [Unknown]
